FAERS Safety Report 4603287-5 (Version None)
Quarter: 2005Q1

REPORT INFORMATION
  Report Type: 
  Country: None (occurrence: None)
  Receive Date: 20050308
  Receipt Date: 20050223
  Transmission Date: 20050727
  Serious: Yes (Hospitalization, Disabling)
  Sender: FDA-Public Use
  Company Number: CERZ-10762

PATIENT
  Age: 9 Month
  Sex: Female
  Weight: 5 kg

DRUGS (1)
  1. CEREZYME [Suspect]
     Indication: GAUCHER'S DISEASE
     Dosage: 400  UNITS Q2WS IV
     Route: 042
     Dates: start: 20040827

REACTIONS (2)
  - CONVULSION [None]
  - RESPIRATORY DISORDER [None]
